FAERS Safety Report 5114513-0 (Version None)
Quarter: 2006Q3

REPORT INFORMATION
  Report Type: 
  Country: None (occurrence: None)
  Receive Date: 20060921
  Receipt Date: 20060907
  Transmission Date: 20061208
  Serious: Yes (Death)
  Sender: FDA-Public Use
  Company Number: US192618

PATIENT
  Age: 54 Year
  Sex: Male

DRUGS (4)
  1. SENSIPAR [Suspect]
     Indication: HYPERPARATHYROIDISM PRIMARY
     Dosage: 360 MG, 1 IN 1 DAYS, PO
     Route: 048
  2. PAMIDRONATE DISODIUM [Concomitant]
  3. ZOLEDRONIC ACID [Concomitant]
  4. SODIUM CHLORIDE [Concomitant]

REACTIONS (1)
  - DEATH [None]
